FAERS Safety Report 6301478-9 (Version None)
Quarter: 2009Q3

REPORT INFORMATION
  Report Type: 
  Country: None (occurrence: None)
  Receive Date: 20090807
  Receipt Date: 20090803
  Transmission Date: 20100115
  Serious: Yes (Other)
  Sender: FDA-Public Use
  Company Number: A0800114A

PATIENT
  Sex: Female

DRUGS (4)
  1. VALTREX [Suspect]
     Indication: GENITAL HERPES
     Dosage: 1G PER DAY
     Route: 048
     Dates: end: 20090731
  2. TETRACYCLINE [Suspect]
     Indication: ACNE
     Dosage: 250MG TWICE PER DAY
     Route: 048
     Dates: start: 20090201, end: 20090731
  3. ORTHO EVRA [Concomitant]
  4. RETIN-A [Concomitant]

REACTIONS (1)
  - HEPATIC ENZYME INCREASED [None]
